FAERS Safety Report 16119176 (Version 1)
Quarter: 2019Q1

REPORT INFORMATION
  Report Type: Spontaneous
  Country: DE (occurrence: DE)
  Receive Date: 20190326
  Receipt Date: 20190326
  Transmission Date: 20190418
  Serious: Yes (Other)
  Sender: FDA-Public Use
  Company Number: DE-BAYER-2019-006514

PATIENT
  Age: 46 Year
  Sex: Female
  Weight: 107 kg

DRUGS (3)
  1. THYROXIN [Concomitant]
     Active Substance: LEVOTHYROXINE
     Indication: HYPOTHYROIDISM
     Route: 048
  2. MIRENA [Suspect]
     Active Substance: LEVONORGESTREL
     Indication: CONTRACEPTION
     Dosage: 20 MCG/24HR, CONT
     Route: 015
     Dates: start: 201507, end: 20190306
  3. MIRENA [Suspect]
     Active Substance: LEVONORGESTREL

REACTIONS (8)
  - Complication of device removal [Recovered/Resolved]
  - Medical device entrapment [Recovered/Resolved]
  - Device issue [Recovered/Resolved]
  - Adenomyosis [Not Recovered/Not Resolved]
  - Endometrial disorder [Not Recovered/Not Resolved]
  - Drug ineffective [None]
  - Amenorrhoea [Recovered/Resolved]
  - Genital haemorrhage [Recovered/Resolved]

NARRATIVE: CASE EVENT DATE: 20181216
